FAERS Safety Report 13762834 (Version 1)
Quarter: 2017Q3

REPORT INFORMATION
  Report Type: Spontaneous
  Country: GB (occurrence: GB)
  Receive Date: 20170718
  Receipt Date: 20170718
  Transmission Date: 20171127
  Serious: Yes (Other)
  Sender: FDA-Public Use
  Company Number: GB-TEVA-784726ACC

PATIENT
  Age: 41 Year
  Sex: Male
  Weight: 107 kg

DRUGS (5)
  1. QUETIAPINE FUMARATE. [Concomitant]
     Active Substance: QUETIAPINE FUMARATE
  2. TEGRETOL [Concomitant]
     Active Substance: CARBAMAZEPINE
  3. VENLAFAXINE [Concomitant]
     Active Substance: VENLAFAXINE HYDROCHLORIDE
  4. CLARITHROMYCIN. [Suspect]
     Active Substance: CLARITHROMYCIN
     Indication: ECZEMA
     Dosage: 1000 MILLIGRAM DAILY;
     Route: 048
     Dates: start: 20170622, end: 20170622
  5. CP PHARMS DIAZEPAM [Concomitant]

REACTIONS (1)
  - Hypoglycaemia [Recovered/Resolved]

NARRATIVE: CASE EVENT DATE: 20170622
